FAERS Safety Report 24608845 (Version 1)
Quarter: 2024Q4

REPORT INFORMATION
  Report Type: Spontaneous
  Country: US (occurrence: US)
  Receive Date: 20241112
  Receipt Date: 20241112
  Transmission Date: 20250115
  Serious: No
  Sender: Alora Pharma
  Company Number: US-ACELLA PHARMACEUTICALS, LLC-2024ALO00236

PATIENT
  Age: 80 Year
  Sex: Female

DRUGS (2)
  1. CICLOPIROX [Suspect]
     Active Substance: CICLOPIROX
     Indication: Onychomycosis
     Dosage: UNK, 1X/DAY
     Route: 061
     Dates: start: 202310
  2. CICLOPIROX [Suspect]
     Active Substance: CICLOPIROX
     Dosage: UNK, 1X/DAY
     Route: 061

REACTIONS (1)
  - Therapeutic product effect decreased [Not Recovered/Not Resolved]

NARRATIVE: CASE EVENT DATE: 20231001
